FAERS Safety Report 7682771-4 (Version None)
Quarter: 2011Q3

REPORT INFORMATION
  Report Type: 
  Country: None (occurrence: None)
  Receive Date: 20110815
  Receipt Date: 20110801
  Transmission Date: 20111222
  Serious: Yes (Other)
  Sender: FDA-Public Use
  Company Number: ES-CELGENEUS-144-20785-11070431

PATIENT
  Age: 17 Year
  Sex: Male

DRUGS (11)
  1. THALIDOMIDE [Suspect]
     Dosage: 150 MILLIGRAM
     Route: 048
     Dates: start: 20070323, end: 20070801
  2. THALIDOMIDE [Suspect]
     Dosage: 100 MILLIGRAM
     Route: 048
     Dates: start: 20060426, end: 20070301
  3. OMEPRAZOLE [Concomitant]
     Route: 065
  4. LEDERFOLIN [Concomitant]
     Route: 065
  5. METHOTREXATE [Concomitant]
     Route: 065
  6. THALIDOMIDE [Suspect]
     Dosage: 100 MILLIGRAM
     Route: 048
     Dates: start: 20080319, end: 20091201
  7. ESCITALOPRAM [Concomitant]
     Route: 065
  8. PREDNISONE [Concomitant]
     Route: 065
  9. COLCHICINE [Concomitant]
     Route: 065
  10. THALIDOMIDE [Suspect]
     Dosage: 100 MILLIGRAM
     Route: 048
     Dates: start: 20070816, end: 20080301
  11. PANTOPRAZOLE [Concomitant]
     Route: 065

REACTIONS (4)
  - BEHCET'S SYNDROME [None]
  - DRUG INTOLERANCE [None]
  - OESOPHAGEAL ULCER [None]
  - CONDITION AGGRAVATED [None]
